FAERS Safety Report 10959853 (Version 2)
Quarter: 2015Q2

REPORT INFORMATION
  Report Type: Spontaneous
  Country: JP (occurrence: JP)
  Receive Date: 20150327
  Receipt Date: 20150413
  Transmission Date: 20150821
  Serious: Yes (Other)
  Sender: FDA-Public Use
  Company Number: JP-ACCORD-029599

PATIENT
  Age: 73 Year
  Sex: Male

DRUGS (3)
  1. OXALIPLATIN. [Suspect]
     Active Substance: OXALIPLATIN
     Indication: COLORECTAL CANCER
     Dosage: MFOLFOX6 REGIMEN DAY 1, 3RD COURSE
  2. FLUOROURACIL. [Suspect]
     Active Substance: FLUOROURACIL
     Indication: COLORECTAL CANCER
     Dosage: 3RD COURSE.?CONTINUOUS IV INFUSION OF 46H DAY 1-2.?ALSO RECEIVED 400 MG/M2 RAPID IV INFUSION DAY 1
     Route: 042
  3. FOLINIC ACID [Suspect]
     Active Substance: LEUCOVORIN
     Indication: COLORECTAL CANCER
     Dosage: MFOLFOX6 REGIMEN. DAY 1, 3RD COURSE.

REACTIONS (2)
  - Hyperammonaemia [Recovering/Resolving]
  - Weight decreased [Unknown]
